FAERS Safety Report 24285709 (Version 4)
Quarter: 2024Q4

REPORT INFORMATION
  Report Type: Spontaneous
  Country: US (occurrence: US)
  Receive Date: 20240905
  Receipt Date: 20241130
  Transmission Date: 20250115
  Serious: No
  Sender: SANOFI AVENTIS
  Company Number: US-SANOFI-02197611

PATIENT
  Age: 43 Year
  Sex: Male

DRUGS (2)
  1. DUPIXENT [Suspect]
     Active Substance: DUPILUMAB
     Indication: Eczema
     Dosage: 300 MG, QW
     Route: 058
  2. DUPIXENT [Suspect]
     Active Substance: DUPILUMAB
     Indication: Eosinophilic oesophagitis
     Dosage: 300 MG, QOW
     Route: 058

REACTIONS (11)
  - Injection site irritation [Unknown]
  - Myositis [Unknown]
  - Musculoskeletal chest pain [Unknown]
  - Therapeutic response unexpected [Unknown]
  - Accidental exposure to product [Unknown]
  - Exposure via skin contact [Unknown]
  - Off label use [Unknown]
  - Injection site rash [Unknown]
  - Dysphagia [Unknown]
  - Odynophagia [Unknown]
  - Myalgia [Unknown]

NARRATIVE: CASE EVENT DATE: 20240823
